FAERS Safety Report 23919285 (Version 2)
Quarter: 2024Q2

REPORT INFORMATION
  Report Type: Spontaneous
  Country: RO (occurrence: RO)
  Receive Date: 20240530
  Receipt Date: 20240605
  Transmission Date: 20240716
  Serious: Yes (Other)
  Sender: FDA-Public Use
  Company Number: RO-Merck Healthcare KGaA-2024028107

PATIENT
  Age: 18 Year
  Sex: Female

DRUGS (1)
  1. CLADRIBINE [Suspect]
     Active Substance: CLADRIBINE
     Indication: Multiple sclerosis
     Dosage: FIRST CYCLE
     Dates: start: 2023

REACTIONS (3)
  - Epilepsy [Unknown]
  - Psychotic disorder [Unknown]
  - Suicide attempt [Unknown]
